FAERS Safety Report 6887629-6 (Version None)
Quarter: 2010Q3

REPORT INFORMATION
  Report Type: 
  Country: None (occurrence: None)
  Receive Date: 20100730
  Receipt Date: 20100726
  Transmission Date: 20110219
  Serious: Yes (Death, Life-Threatening, Other)
  Sender: FDA-Public Use
  Company Number: DE-BAYER-201028275GPV

PATIENT
  Age: 80 Year
  Sex: Male
  Weight: 87 kg

DRUGS (20)
  1. CIPRO [Suspect]
     Indication: PROPHYLAXIS
     Route: 048
     Dates: start: 20100317, end: 20100322
  2. MOLSIDOMIN [Suspect]
     Route: 048
     Dates: end: 20100303
  3. MOLSIDOMIN [Suspect]
     Route: 048
     Dates: start: 20100305, end: 20100322
  4. TRUXAL [Suspect]
     Indication: DEMENTIA
     Route: 048
     Dates: start: 20100321, end: 20100322
  5. METOPROLOL TARTRATE [Suspect]
     Indication: PRODUCT USED FOR UNKNOWN INDICATION
     Route: 048
     Dates: end: 20100322
  6. RAMIPRIL [Suspect]
     Indication: PRODUCT USED FOR UNKNOWN INDICATION
     Dosage: 5/25 MG PER DAY
     Route: 048
     Dates: end: 20100322
  7. SPASMEX [Suspect]
     Indication: PRODUCT USED FOR UNKNOWN INDICATION
     Route: 048
     Dates: start: 20100315, end: 20100322
  8. SPASMEX [Suspect]
     Route: 048
     Dates: end: 20100314
  9. TORASEMID [Suspect]
     Indication: PRODUCT USED FOR UNKNOWN INDICATION
     Route: 048
     Dates: start: 20100317, end: 20100322
  10. LORZAAR [Suspect]
     Indication: PRODUCT USED FOR UNKNOWN INDICATION
     Route: 048
     Dates: start: 20100319, end: 20100322
  11. LORAZEPAM [Concomitant]
     Indication: DEMENTIA
     Route: 048
     Dates: start: 20100319, end: 20100322
  12. OXAZEPAM [Concomitant]
     Route: 048
     Dates: start: 20100318, end: 20100318
  13. OXAZEPAM [Concomitant]
     Route: 048
     Dates: start: 20100319, end: 20100320
  14. OXAZEPAM [Concomitant]
     Route: 048
     Dates: start: 20100321, end: 20100322
  15. ASPIRIN [Concomitant]
     Route: 048
  16. ALNA [Concomitant]
     Route: 048
     Dates: end: 20100322
  17. FOLSAEURE [Concomitant]
     Route: 048
     Dates: start: 20100311, end: 20100322
  18. SORTIS [Concomitant]
     Route: 048
     Dates: start: 20100319, end: 20100322
  19. MELPERON [Concomitant]
     Route: 048
     Dates: start: 20100305, end: 20100317
  20. PIPAMPERON [Concomitant]
     Route: 048
     Dates: start: 20100317

REACTIONS (2)
  - ELECTROCARDIOGRAM QT PROLONGED [None]
  - VENTRICULAR FIBRILLATION [None]
